FAERS Safety Report 6086760-5 (Version None)
Quarter: 2009Q1

REPORT INFORMATION
  Report Type: 
  Country: None (occurrence: None)
  Receive Date: 20090223
  Receipt Date: 20090211
  Transmission Date: 20090719
  Serious: Yes (Other)
  Sender: FDA-Public Use
  Company Number: CA-JNJFOC-20080603042

PATIENT
  Sex: Female
  Weight: 80 kg

DRUGS (6)
  1. REMICADE [Suspect]
     Dosage: RECEIVED 19 INFUSIONS
     Route: 042
  2. REMICADE [Suspect]
     Route: 042
  3. REMICADE [Suspect]
     Indication: CROHN'S DISEASE
     Dosage: 15 INFUSIONS
     Route: 042
  4. BENADRYL [Concomitant]
     Indication: PREMEDICATION
     Route: 048
  5. SOLU-CORTEF [Concomitant]
     Indication: PREMEDICATION
     Route: 048
  6. FERROUS SULFATE TAB [Concomitant]
     Dosage: 1 TABLET DAILY

REACTIONS (3)
  - CAESAREAN SECTION [None]
  - DRUG EXPOSURE DURING PREGNANCY [None]
  - NASOPHARYNGITIS [None]
